FAERS Safety Report 21281691 (Version 5)
Quarter: 2024Q4

REPORT INFORMATION
  Report Type: Spontaneous
  Country: JP (occurrence: JP)
  Receive Date: 20220901
  Receipt Date: 20241204
  Transmission Date: 20250115
  Serious: Yes (Disabling)
  Sender: ABBVIE
  Company Number: JP-ABBVIE-22K-087-4524769-00

PATIENT
  Age: 47 Year
  Sex: Female

DRUGS (7)
  1. RINVOQ [Suspect]
     Active Substance: UPADACITINIB
     Indication: Rheumatoid arthritis
     Dosage: 7.5 MILLIGRAM
     Route: 048
     Dates: start: 20220512
  2. PREDNISOLONE [Concomitant]
     Active Substance: PREDNISOLONE
     Indication: Rheumatoid arthritis
     Dosage: 0.5 MILLIGRAM
     Route: 048
     Dates: start: 20220623
  3. LANSOPRAZOLE [Concomitant]
     Active Substance: LANSOPRAZOLE
     Indication: Gastrooesophageal reflux disease
     Dosage: 15 MILLIGRAM
     Route: 048
     Dates: start: 20221108
  4. REBAMIPIDE ME [Concomitant]
     Indication: Rheumatoid arthritis
     Dosage: 200 MILLIGRAM
     Route: 048
     Dates: start: 20220623
  5. CELECOXIB [Concomitant]
     Active Substance: CELECOXIB
     Indication: Rheumatoid arthritis
     Dosage: 400 MILLIGRAM
     Route: 048
     Dates: start: 20220623
  6. METHOTREXATE [Concomitant]
     Active Substance: METHOTREXATE
     Indication: Rheumatoid arthritis
     Dosage: 8 MILLIGRAM
     Route: 048
     Dates: start: 20220422
  7. ASPIRIN [Concomitant]
     Active Substance: ASPIRIN
     Indication: Cerebral infarction
     Dosage: 100 MILLIGRAM
     Route: 048
     Dates: start: 20221108

REACTIONS (4)
  - Thalamic infarction [Recovered/Resolved with Sequelae]
  - Mental impairment [Unknown]
  - Disorientation [Unknown]
  - Memory impairment [Unknown]

NARRATIVE: CASE EVENT DATE: 20220824
